FAERS Safety Report 25356743 (Version 3)
Quarter: 2025Q3

REPORT INFORMATION
  Report Type: Spontaneous
  Country: KR (occurrence: KR)
  Receive Date: 20250526
  Receipt Date: 20250701
  Transmission Date: 20251021
  Serious: Yes (Hospitalization)
  Sender: SAMSUNG BIOEPIS
  Company Number: KR-SAMSUNG BIOEPIS-SB-2025-17938

PATIENT
  Age: 64 Year
  Sex: Male
  Weight: 57 kg

DRUGS (22)
  1. TRASTUZUMAB [Suspect]
     Active Substance: TRASTUZUMAB
     Indication: Gallbladder cancer
     Route: 042
     Dates: start: 20240703, end: 20250514
  2. TRASTUZUMAB [Suspect]
     Active Substance: TRASTUZUMAB
     Dosage: RESTARTED THERAPY;
     Route: 042
     Dates: start: 20250530, end: 20250623
  3. TRASTUZUMAB [Suspect]
     Active Substance: TRASTUZUMAB
     Dosage: RESTARTED THERAPY; 24-JUN-2025
     Route: 042
  4. NIVOLUMAB [Suspect]
     Active Substance: NIVOLUMAB
     Indication: Gallbladder cancer
     Route: 042
     Dates: start: 20240703, end: 20250514
  5. NIVOLUMAB [Suspect]
     Active Substance: NIVOLUMAB
     Dosage: RESTARTED THERAPY;
     Route: 042
     Dates: start: 20250530, end: 20250623
  6. NIVOLUMAB [Suspect]
     Active Substance: NIVOLUMAB
     Dosage: RESTARTED THERAPY; 24-JUN-2025
     Route: 042
  7. GEMCITABINE [Suspect]
     Active Substance: GEMCITABINE
     Indication: Gallbladder cancer
     Dosage: 1640;
     Route: 042
     Dates: start: 20240703, end: 20250514
  8. GEMCITABINE [Suspect]
     Active Substance: GEMCITABINE
     Route: 042
     Dates: start: 20240703, end: 20250514
  9. GEMCITABINE [Suspect]
     Active Substance: GEMCITABINE
     Route: 042
     Dates: start: 20250502, end: 20250514
  10. GEMCITABINE [Suspect]
     Active Substance: GEMCITABINE
     Dosage: RESTARTED THERAPY;
     Route: 042
     Dates: start: 20250530, end: 20250623
  11. GEMCITABINE [Suspect]
     Active Substance: GEMCITABINE
     Dosage: RESTARTED THERAPY; 24-JUN-2025
     Route: 042
  12. CISPLATIN [Suspect]
     Active Substance: CISPLATIN
     Indication: Gallbladder cancer
     Dosage: 41;
     Route: 042
     Dates: start: 20240703, end: 20250514
  13. CISPLATIN [Suspect]
     Active Substance: CISPLATIN
     Dosage: RESTARTED THERAPY;
     Route: 042
     Dates: start: 20250530, end: 20250623
  14. CISPLATIN [Suspect]
     Active Substance: CISPLATIN
     Dosage: RESTARTED THERAPY; 24-JUN-2025
     Route: 042
  15. VIREAD [Concomitant]
     Active Substance: TENOFOVIR DISOPROXIL FUMARATE
     Indication: Product used for unknown indication
     Dates: start: 20240617
  16. MACPERAN [METOCLOPRAMIDE] [Concomitant]
     Indication: Product used for unknown indication
     Dates: start: 20240710
  17. KABALIN [Concomitant]
     Indication: Product used for unknown indication
     Dosage: CAPSULES;
     Dates: start: 20250403
  18. ALLEGRA [Concomitant]
     Active Substance: FEXOFENADINE HYDROCHLORIDE
     Indication: Prophylaxis
     Dates: start: 20250410
  19. Candemore [Concomitant]
     Indication: Prophylaxis
     Dates: start: 20241129
  20. Dicamax [Concomitant]
     Indication: Prophylaxis
     Dosage: 1000;
     Dates: start: 20241112
  21. FEBUXOSTAT [Concomitant]
     Active Substance: FEBUXOSTAT
     Indication: Prophylaxis
     Dates: start: 20241112
  22. LIVALO [Concomitant]
     Active Substance: PITAVASTATIN CALCIUM
     Indication: Prophylaxis
     Dates: start: 20241112

REACTIONS (3)
  - Platelet count decreased [Recovering/Resolving]
  - Neutrophil count decreased [Recovered/Resolved]
  - Off label use [Unknown]

NARRATIVE: CASE EVENT DATE: 20250514
